FAERS Safety Report 21793539 (Version 1)
Quarter: 2022Q4

REPORT INFORMATION
  Report Type: Other
  Country: CA (occurrence: CA)
  Receive Date: 20221229
  Receipt Date: 20221229
  Transmission Date: 20230113
  Serious: Yes (Other)
  Sender: FDA-Public Use
  Company Number: CA-APOTEX-2022AP017414

PATIENT

DRUGS (3)
  1. ANASTROZOLE [Suspect]
     Active Substance: ANASTROZOLE
     Indication: Product used for unknown indication
     Dosage: UNK
     Route: 048
  2. FULVESTRANT [Suspect]
     Active Substance: FULVESTRANT
     Indication: Product used for unknown indication
     Dosage: UNK
     Route: 030
  3. IBRANCE [Suspect]
     Active Substance: PALBOCICLIB
     Indication: Product used for unknown indication
     Dosage: 125 MILLIGRAM
     Route: 048

REACTIONS (3)
  - Disease progression [Unknown]
  - Off label use [Unknown]
  - Product use issue [Unknown]
